FAERS Safety Report 6065293-6 (Version None)
Quarter: 2009Q1

REPORT INFORMATION
  Report Type: 
  Country: None (occurrence: None)
  Receive Date: 20090204
  Receipt Date: 20090123
  Transmission Date: 20090719
  Serious: Yes (Death)
  Sender: FDA-Public Use
  Company Number: JP-PFIZER INC-2009162441

PATIENT
  Sex: Female

DRUGS (2)
  1. RIFABUTIN [Suspect]
     Indication: MYCOBACTERIA TEST
     Dosage: 300 MG, 1X/DAY
     Route: 048
     Dates: start: 20081222, end: 20090109
  2. RIFAMPICIN [Concomitant]
     Dates: end: 20081221

REACTIONS (1)
  - DEATH [None]
